FAERS Safety Report 6074401-2 (Version None)
Quarter: 2009Q1

REPORT INFORMATION
  Report Type: 
  Country: None (occurrence: None)
  Receive Date: 20090206
  Receipt Date: 20090122
  Transmission Date: 20090719
  Serious: Yes (Other)
  Sender: FDA-Public Use
  Company Number: DSA_33140_2009

PATIENT
  Sex: Female

DRUGS (6)
  1. DILTIAZEM HCL [Suspect]
     Indication: DRUG USE FOR UNKNOWN INDICATION
     Dosage: DF,
  2. OMEPRAZOLE [Suspect]
     Indication: DRUG USE FOR UNKNOWN INDICATION
     Dosage: DF;
  3. CEPHALEXIN [Suspect]
     Indication: DRUG USE FOR UNKNOWN INDICATION
     Dosage: DF,
  4. AZATHIOPRINE [Suspect]
     Indication: DRUG USE FOR UNKNOWN INDICATION
     Dosage: DF,
  5. PAROXETINE HCL [Suspect]
     Indication: DRUG USE FOR UNKNOWN INDICATION
     Dosage: DF;
  6. TACROLIMUS [Suspect]
     Indication: DRUG USE FOR UNKNOWN INDICATION
     Dosage: DF;

REACTIONS (1)
  - RECTAL HAEMORRHAGE [None]
